FAERS Safety Report 5157598-8 (Version None)
Quarter: 2006Q4

REPORT INFORMATION
  Report Type: 
  Country: None (occurrence: None)
  Receive Date: 20061127
  Receipt Date: 20061120
  Transmission Date: 20070319
  Serious: Yes (Other)
  Sender: FDA-Public Use
  Company Number: US-JNJFOC-20061104933

PATIENT
  Sex: Female

DRUGS (3)
  1. REMICADE [Suspect]
     Indication: DRUG USE FOR UNKNOWN INDICATION
     Route: 042
  2. ARAVA [Concomitant]
  3. ZETIA [Concomitant]

REACTIONS (1)
  - STEVENS-JOHNSON SYNDROME [None]
